FAERS Safety Report 13390283 (Version 1)
Quarter: 2017Q1

REPORT INFORMATION
  Report Type: Spontaneous
  Country: US (occurrence: US)
  Receive Date: 20170330
  Receipt Date: 20170330
  Transmission Date: 20170429
  Serious: Yes (Other)
  Sender: FDA-Public Use
  Company Number: None

PATIENT
  Age: 56 Year
  Sex: Male
  Weight: 99.6 kg

DRUGS (1)
  1. BUPRENORPHINE/NALOXONE [Suspect]
     Active Substance: BUPRENORPHINE\NALOXONE
     Indication: DRUG ABUSE
     Route: 060
     Dates: start: 20160615, end: 20160803

REACTIONS (7)
  - Tension [None]
  - Drug effect decreased [None]
  - Restlessness [None]
  - Nervousness [None]
  - Tachycardia [None]
  - Irritability [None]
  - Withdrawal syndrome [None]

NARRATIVE: CASE EVENT DATE: 20160803
